FAERS Safety Report 6491643-2 (Version None)
Quarter: 2009Q4

REPORT INFORMATION
  Report Type: 
  Country: None (occurrence: None)
  Receive Date: 20091207
  Receipt Date: 20091130
  Transmission Date: 20100525
  Serious: Yes (Hospitalization)
  Sender: FDA-Public Use
  Company Number: 2009SP013799

PATIENT
  Age: 52 Year
  Sex: Female
  Weight: 62.7 kg

DRUGS (10)
  1. PEG-INTRON [Suspect]
     Indication: HEPATITIS C
     Dosage: 80 MCG; QW; SC
     Route: 058
     Dates: start: 20090317, end: 20090826
  2. RIBAVIRIN [Suspect]
     Indication: HEPATITIS C
     Dosage: 600 MG; QD; PO 200 MG; QD; PO
     Route: 048
     Dates: start: 20090317, end: 20090402
  3. RIBAVIRIN [Suspect]
     Indication: HEPATITIS C
     Dosage: 600 MG; QD; PO 200 MG; QD; PO
     Route: 048
     Dates: start: 20090403, end: 20090901
  4. MP-424 (INVESTIGATIONAL DRUG) [Suspect]
     Indication: HEPATITIS C
     Dosage: PO
     Route: 048
     Dates: start: 20090317, end: 20090609
  5. MUCOSTA [Concomitant]
  6. VOLTAREN [Concomitant]
  7. ZYLORIC [Concomitant]
  8. FESIN [Concomitant]
  9. LENDORMIN [Concomitant]
  10. FEMININA [Concomitant]

REACTIONS (1)
  - ERYTHEMA NODOSUM [None]
